FAERS Safety Report 6335937-X (Version None)
Quarter: 2009Q3

REPORT INFORMATION
  Report Type: 
  Country: None (occurrence: None)
  Receive Date: 20090831
  Receipt Date: 20090831
  Transmission Date: 20100115
  Serious: Yes (Other)
  Sender: FDA-Public Use
  Company Number: None

PATIENT
  Age: 56 Year
  Sex: Female
  Weight: 113.3993 kg

DRUGS (1)
  1. KEFLEX [Suspect]
     Indication: RASH
     Dates: start: 20090622, end: 20090626

REACTIONS (3)
  - LIP SWELLING [None]
  - ORAL DISCOMFORT [None]
  - SWELLING FACE [None]
